FAERS Safety Report 5761828-9 (Version None)
Quarter: 2008Q2

REPORT INFORMATION
  Report Type: 
  Country: None (occurrence: None)
  Receive Date: 20080606
  Receipt Date: 20080526
  Transmission Date: 20081010
  Serious: Yes (Other)
  Sender: FDA-Public Use
  Company Number: BR-PFIZER INC-2008046503

PATIENT
  Sex: Female
  Weight: 57 kg

DRUGS (4)
  1. CHANTIX [Suspect]
     Indication: TOBACCO USER
     Route: 048
  2. LOSARTAN POTASSIUM [Concomitant]
     Route: 065
  3. LINOLEIC ACID [Concomitant]
     Route: 065
  4. VITAMIN E [Concomitant]
     Route: 065

REACTIONS (5)
  - ABDOMINAL DISTENSION [None]
  - DYSURIA [None]
  - ERYTHEMA [None]
  - PRURITUS [None]
  - RASH [None]
